FAERS Safety Report 21035973 (Version 1)
Quarter: 2022Q3

REPORT INFORMATION
  Report Type: Spontaneous
  Country: US (occurrence: US)
  Receive Date: 20220701
  Receipt Date: 20220701
  Transmission Date: 20221027
  Serious: Yes (Hospitalization)
  Sender: FDA-Public Use
  Company Number: US-GW PHARMA-2022-US-022147

PATIENT
  Sex: Male

DRUGS (1)
  1. EPIDIOLEX [Suspect]
     Active Substance: CANNABIDIOL
     Indication: Severe myoclonic epilepsy of infancy
     Dosage: 0.5 FOR 7DAYS TWICE A DAY,THEN 1 ML 7 DAYS TWICE A DAY THEN 1.5 ML FOR 7 DAYS,THEN 2 ML TWICE A DAY

REACTIONS (1)
  - Hospitalisation [Unknown]
